FAERS Safety Report 7917588-6 (Version None)
Quarter: 2011Q4

REPORT INFORMATION
  Report Type: 
  Country: None (occurrence: None)
  Receive Date: 20111114
  Receipt Date: 20111107
  Transmission Date: 20120403
  Serious: Yes (Hospitalization)
  Sender: FDA-Public Use
  Company Number: 2011SP040711

PATIENT
  Age: 38 Year
  Sex: Male

DRUGS (12)
  1. DEPAKENE [Concomitant]
  2. SEROQUEL [Concomitant]
  3. CLONAZEPAM [Concomitant]
  4. CYSVON [Concomitant]
  5. MOHRUS TAPE [Concomitant]
  6. REMERON [Suspect]
     Indication: INSOMNIA
     Dosage: 15 MG;QD;PO
     Route: 048
     Dates: start: 20110426
  7. REMERON [Suspect]
     Indication: DEPRESSIVE SYMPTOM
     Dosage: 15 MG;QD;PO
     Route: 048
     Dates: start: 20110426
  8. ETISEDAN [Concomitant]
  9. LITIOMAL [Concomitant]
  10. DEPROMEL [Concomitant]
  11. INDOMETHACIN [Concomitant]
  12. MEILAX [Concomitant]

REACTIONS (8)
  - AGITATION [None]
  - AGGRESSION [None]
  - MOOD ALTERED [None]
  - LOGORRHOEA [None]
  - SUICIDE ATTEMPT [None]
  - MOOD SWINGS [None]
  - SUICIDAL IDEATION [None]
  - MULTIPLE DRUG OVERDOSE INTENTIONAL [None]
